FAERS Safety Report 7392937-9 (Version None)
Quarter: 2011Q2

REPORT INFORMATION
  Report Type: 
  Country: None (occurrence: None)
  Receive Date: 20110404
  Receipt Date: 20110325
  Transmission Date: 20111010
  Serious: Yes (Hospitalization)
  Sender: FDA-Public Use
  Company Number: US-ASTRAZENECA-2011SE17515

PATIENT
  Sex: Female

DRUGS (5)
  1. AMBIEN [Concomitant]
     Dosage: AS NEEDED
  2. CRESTOR [Suspect]
     Route: 048
  3. DIOVAN [Concomitant]
  4. ALPRAZOLAM [Concomitant]
  5. ARIMIDEX [Suspect]
     Route: 048

REACTIONS (5)
  - LOSS OF EMPLOYMENT [None]
  - HYPERTENSION [None]
  - MASTECTOMY [None]
  - HYPERLIPIDAEMIA [None]
  - DIABETES MELLITUS [None]
